FAERS Safety Report 8189632-5 (Version None)
Quarter: 2012Q1

REPORT INFORMATION
  Report Type: 
  Country: None (occurrence: None)
  Receive Date: 20120307
  Receipt Date: 20120224
  Transmission Date: 20120608
  Serious: Yes (Hospitalization)
  Sender: FDA-Public Use
  Company Number: PL-BRISTOL-MYERS SQUIBB COMPANY-16418642

PATIENT
  Age: 62 Year
  Sex: Male
  Weight: 70 kg

DRUGS (5)
  1. NECITUMUMAB [Suspect]
     Indication: NON-SMALL CELL LUNG CANCER STAGE IV
     Dosage: LAST DOSE ON 07SEP11
     Route: 042
     Dates: start: 20110706
  2. ATROVENT [Concomitant]
  3. FRAGMIN [Concomitant]
  4. GEMCITABINE HYDROCHLORIDE [Suspect]
     Indication: NON-SMALL CELL LUNG CANCER STAGE IV
     Dosage: LAST DOSE ON 07SEP11
     Route: 042
     Dates: start: 20110706
  5. CISPLATIN [Suspect]
     Indication: NON-SMALL CELL LUNG CANCER STAGE IV
     Dosage: LAST DOSE ON 30AUG11
     Route: 042
     Dates: start: 20110706

REACTIONS (1)
  - THROMBOSIS [None]
